FAERS Safety Report 25071409 (Version 3)
Quarter: 2025Q3

REPORT INFORMATION
  Report Type: Report from Study
  Country: US (occurrence: US)
  Receive Date: 20250312
  Receipt Date: 20250731
  Transmission Date: 20251021
  Serious: No
  Sender: SUNOVION
  Company Number: US-SMPA-2025SPA002128AA

PATIENT

DRUGS (1)
  1. ORGOVYX [Suspect]
     Active Substance: RELUGOLIX
     Indication: Prostate cancer
     Dosage: 120 MG, QD
     Route: 048
     Dates: start: 20250220

REACTIONS (5)
  - Lymphadenitis [Unknown]
  - Blood testosterone increased [Unknown]
  - Urticaria [Recovering/Resolving]
  - Hot flush [Unknown]
  - Incorrect dose administered [Unknown]
